FAERS Safety Report 6453614-1 (Version None)
Quarter: 2009Q4

REPORT INFORMATION
  Report Type: 
  Country: None (occurrence: None)
  Receive Date: 20091124
  Receipt Date: 20091113
  Transmission Date: 20100525
  Serious: Yes (Hospitalization)
  Sender: FDA-Public Use
  Company Number: FR-PFIZER INC-2009300905

PATIENT
  Age: 85 Year
  Sex: Male

DRUGS (3)
  1. ATARAX [Suspect]
     Indication: SLEEP DISORDER
     Dosage: 50 MG, 1X/DAY
     Route: 048
     Dates: end: 20091003
  2. SERESTA [Suspect]
     Indication: SLEEP DISORDER
     Dosage: 50 MG, 1X/DAY
     Route: 048
     Dates: end: 20091003
  3. ATHYMIL [Suspect]
     Indication: DEPRESSION
     Dosage: 30 MG, 1X/DAY
     Route: 048
     Dates: end: 20091003

REACTIONS (7)
  - ALTERED STATE OF CONSCIOUSNESS [None]
  - DISTURBANCE IN ATTENTION [None]
  - FALL [None]
  - MALAISE [None]
  - OVERDOSE [None]
  - PSYCHOMOTOR RETARDATION [None]
  - SOMNOLENCE [None]
